FAERS Safety Report 8292727 (Version 3)
Quarter: 2013Q3

REPORT INFORMATION
  Report Type: Spontaneous
  Country: US (occurrence: US)
  Receive Date: 20111215
  Receipt Date: 20130801
  Transmission Date: 20140515
  Serious: Yes (Death)
  Sender: FDA-Public Use
  Company Number: PHHY2011US108066

PATIENT
  Age: 10 Year
  Sex: Male

DRUGS (10)
  1. METHYLPHENIDATE [Suspect]
     Route: 048
  2. QUETIAPINE [Suspect]
  3. CLONAZEPAM [Suspect]
  4. RISPERIDONE [Suspect]
  5. LORAZEPAM [Suspect]
  6. ALPRAZOLAM TABLETS USP [Suspect]
  7. VALPROIC ACID [Suspect]
  8. ATOMOXETINE HYDROCHLORIDE [Suspect]
  9. LORATADINE [Suspect]
  10. OMEPRAZOLE [Suspect]

REACTIONS (1)
  - Toxicity to various agents [Fatal]
